FAERS Safety Report 7752868-9 (Version None)
Quarter: 2011Q3

REPORT INFORMATION
  Report Type: 
  Country: None (occurrence: None)
  Receive Date: 20110915
  Receipt Date: 20110909
  Transmission Date: 20111222
  Serious: Yes (Other)
  Sender: FDA-Public Use
  Company Number: PHHY2010JP76146

PATIENT
  Sex: Male
  Weight: 20 kg

DRUGS (7)
  1. RITALIN [Suspect]
     Dosage: 15 MG, QD
     Route: 048
     Dates: start: 20010929, end: 20020121
  2. MIDAZOLAM HCL [Concomitant]
     Dosage: 100 MG,DAILY
  3. RITALIN [Suspect]
     Indication: NARCOLEPSY
     Dosage: 5 MG, QD
     Route: 048
     Dates: start: 20010905, end: 20010906
  4. RITALIN [Suspect]
     Dosage: UNK UKN, UNK
     Route: 048
     Dates: start: 20010914, end: 20010928
  5. RITALIN [Suspect]
     Dosage: 20 MG, QD
     Route: 048
     Dates: start: 20020122, end: 20061031
  6. RITALIN [Suspect]
     Dosage: 10 MG, QD
     Route: 048
     Dates: start: 20010907, end: 20010910
  7. TOFRANIL [Concomitant]
     Indication: NARCOLEPSY
     Dosage: 10 MG, UNK
     Route: 048
     Dates: start: 20010910, end: 20050628

REACTIONS (4)
  - WEIGHT DECREASED [None]
  - DECREASED APPETITE [None]
  - APNOEA [None]
  - WEIGHT INCREASED [None]
